FAERS Safety Report 12837079 (Version 7)
Quarter: 2017Q1

REPORT INFORMATION
  Report Type: Report from Study
  Country: GB (occurrence: GB)
  Receive Date: 20161011
  Receipt Date: 20170119
  Transmission Date: 20170428
  Serious: Yes (Hospitalization)
  Sender: FDA-Public Use
  Company Number: GB-B.I. PHARMACEUTICALS,INC./RIDGEFIELD-2016-BI-35575BI

PATIENT
  Age: 54 Year
  Sex: Female
  Weight: 64 kg

DRUGS (2)
  1. WARFARIN [Suspect]
     Active Substance: WARFARIN
     Indication: ATRIAL FIBRILLATION
     Dosage: STRENGTH- 1MG+3MG
     Route: 048
     Dates: start: 20160404, end: 20160530
  2. WARFARIN [Suspect]
     Active Substance: WARFARIN
     Dosage: STRENGTH- 1MG+3MG
     Route: 048
     Dates: start: 20160531, end: 20160724

REACTIONS (5)
  - Atrial fibrillation [Recovered/Resolved]
  - Haemoglobin decreased [Recovered/Resolved]
  - Cholelithiasis [Recovered/Resolved]
  - Malaise [Recovered/Resolved]
  - Neurological symptom [Recovered/Resolved]

NARRATIVE: CASE EVENT DATE: 20160530
